FAERS Safety Report 8213237-0 (Version None)
Quarter: 2012Q1

REPORT INFORMATION
  Report Type: 
  Country: None (occurrence: None)
  Receive Date: 20120228
  Receipt Date: 20110412
  Transmission Date: 20120608
  Serious: Yes (Life-Threatening, Hospitalization, Other)
  Sender: FDA-Public Use
  Company Number: RB-25723-2011

PATIENT
  Sex: Male

DRUGS (3)
  1. SUBUTEX [Suspect]
     Indication: DRUG DEPENDENCE
     Dosage: (16-24 MG TRANSPLACENTAL), (16-24 MG TRANSMAMMARY)
     Route: 064
     Dates: start: 20100101, end: 20110320
  2. SUBUTEX [Suspect]
     Indication: DRUG DEPENDENCE
     Dosage: (16-24 MG TRANSPLACENTAL), (16-24 MG TRANSMAMMARY)
     Route: 064
     Dates: start: 20110321
  3. SUBOXONE [Suspect]
     Indication: DRUG DEPENDENCE
     Dosage: (TRANSPLACENTAL)
     Route: 064
     Dates: start: 20100101, end: 20100101

REACTIONS (4)
  - ABDOMINAL PAIN [None]
  - FOETAL EXPOSURE DURING PREGNANCY [None]
  - EXPOSURE DURING BREAST FEEDING [None]
  - DRUG WITHDRAWAL SYNDROME NEONATAL [None]
